FAERS Safety Report 9304089 (Version 2)
Quarter: 2013Q4

REPORT INFORMATION
  Report Type: Spontaneous
  Country: US (occurrence: US)
  Receive Date: 20130522
  Receipt Date: 20131113
  Transmission Date: 20140711
  Serious: Yes (Death, Hospitalization, Other)
  Sender: FDA-Public Use
  Company Number: US-B.I. PHARMACEUTICALS,INC./RIDGEFIELD-2013-BI-14407BP

PATIENT
  Age: 69 Year
  Sex: Female
  Weight: 49.9 kg

DRUGS (12)
  1. PRADAXA [Suspect]
     Indication: ANTICOAGULANT THERAPY
     Dosage: 150 MG
     Dates: start: 20111018, end: 20111028
  2. PRADAXA [Suspect]
     Indication: ATRIAL FIBRILLATION
  3. CORARDONE [Concomitant]
     Dosage: 800 MG
     Route: 048
  4. ASPIRIN [Concomitant]
     Dosage: 81 MG
     Route: 048
  5. LIPITOR [Concomitant]
     Dosage: 20 MG
     Route: 048
  6. WELLBUTRIN [Concomitant]
     Dosage: 150 MG
     Route: 048
  7. CAPOTEN [Concomitant]
     Dosage: 100 MG
     Route: 048
  8. VOLTAREN [Concomitant]
     Dosage: 150 MG
     Route: 048
  9. PROZAC [Concomitant]
     Dosage: 20 MG
     Route: 048
  10. KEPPRA [Concomitant]
     Route: 048
  11. SYNTHROID [Concomitant]
     Dosage: 90 MCG
     Route: 048
  12. PROTNIX [Concomitant]
     Dosage: 40 MG
     Route: 048

REACTIONS (4)
  - Gastrointestinal haemorrhage [Fatal]
  - Coagulopathy [Fatal]
  - Renal failure acute [Unknown]
  - Pericardial effusion [Unknown]
